FAERS Safety Report 9897358 (Version 1)
Quarter: 2014Q1

REPORT INFORMATION
  Report Type: Spontaneous
  Country: US (occurrence: US)
  Receive Date: 20140214
  Receipt Date: 20140214
  Transmission Date: 20141002
  Serious: No
  Sender: FDA-Public Use
  Company Number: US-DRREDDYS-USA/USA/13/0034194

PATIENT
  Sex: Female

DRUGS (2)
  1. SECTRAL [Suspect]
     Indication: TACHYCARDIA
     Route: 048
     Dates: start: 20130818
  2. AMBIEN [Concomitant]
     Indication: ANALGESIC THERAPY
     Route: 065

REACTIONS (1)
  - Insomnia [Not Recovered/Not Resolved]
